FAERS Safety Report 4445305-3 (Version None)
Quarter: 2004Q3

REPORT INFORMATION
  Report Type: 
  Country: None (occurrence: None)
  Receive Date: 20040730
  Receipt Date: 20040607
  Transmission Date: 20050211
  Serious: No
  Sender: FDA-Public Use
  Company Number: PHEH2004US02477

PATIENT
  Age: 69 Year
  Sex: Female

DRUGS (11)
  1. GLEEVEC [Suspect]
     Indication: GASTROINTESTINAL STROMAL TUMOUR
     Dosage: 400 MG, QD, ORAL; SEE IMAGE
     Route: 048
     Dates: start: 20040220, end: 20040227
  2. GLEEVEC [Suspect]
     Indication: GASTROINTESTINAL STROMAL TUMOUR
     Dosage: 400 MG, QD, ORAL; SEE IMAGE
     Route: 048
     Dates: start: 20040320, end: 20040527
  3. GLEEVEC [Suspect]
     Indication: GASTROINTESTINAL STROMAL TUMOUR
     Dosage: 400 MG, QD, ORAL; SEE IMAGE
     Route: 048
     Dates: start: 20040302
  4. GLEEVEC [Suspect]
     Indication: GASTROINTESTINAL STROMAL TUMOUR
     Dosage: 400 MG, QD, ORAL; SEE IMAGE
     Route: 048
     Dates: start: 20040606
  5. VERAPAMIL [Concomitant]
  6. SPIRONOLACTONE [Concomitant]
  7. TERAZOSIN (TERAZOSIN) [Concomitant]
  8. LEVOXYL [Concomitant]
  9. TRAZODONE HCL [Concomitant]
  10. ZETIA [Concomitant]
  11. FOSAMAX [Concomitant]

REACTIONS (7)
  - BLOOD PRESSURE INCREASED [None]
  - DIARRHOEA [None]
  - DIZZINESS [None]
  - FACE OEDEMA [None]
  - OEDEMA PERIPHERAL [None]
  - RASH ERYTHEMATOUS [None]
  - RASH PRURITIC [None]
